FAERS Safety Report 13285185 (Version 1)
Quarter: 2017Q1

REPORT INFORMATION
  Report Type: Spontaneous
  Country: US (occurrence: US)
  Receive Date: 20170301
  Receipt Date: 20170301
  Transmission Date: 20170428
  Serious: Yes (Life-Threatening, Disabling, Other)
  Sender: FDA-Public Use
  Company Number: None

PATIENT
  Age: 31 Year
  Sex: Female
  Weight: 102.6 kg

DRUGS (14)
  1. SODIUM CHLORIDE. [Concomitant]
     Active Substance: SODIUM CHLORIDE
  2. TIZANIDINE. [Concomitant]
     Active Substance: TIZANIDINE
  3. DULOXETINE 60MG DR CAPSULE USP [Suspect]
     Active Substance: DULOXETINE
     Indication: DEPRESSION
     Dosage: ?          QUANTITY:1 CAPSULE(S);?
     Route: 048
     Dates: start: 20161215, end: 20170219
  4. CLONAZEPAM. [Concomitant]
     Active Substance: CLONAZEPAM
  5. ULTRAM [Concomitant]
     Active Substance: TRAMADOL HYDROCHLORIDE
  6. DULOXETINE 60MG DR CAPSULE USP [Suspect]
     Active Substance: DULOXETINE
     Indication: PAIN
     Dosage: ?          QUANTITY:1 CAPSULE(S);?
     Route: 048
     Dates: start: 20161215, end: 20170219
  7. FLORINEF ACETATE [Concomitant]
     Active Substance: FLUDROCORTISONE ACETATE
  8. ZOFRAN [Concomitant]
     Active Substance: ONDANSETRON HYDROCHLORIDE
  9. FENTNYL DURAGESIC PATCH [Concomitant]
  10. CPAP [Concomitant]
     Active Substance: DEVICE
  11. KLOR-CON [Concomitant]
     Active Substance: POTASSIUM CHLORIDE
  12. IMPLANTED LOOP RECORDER [Concomitant]
  13. SYNTHROID [Concomitant]
     Active Substance: LEVOTHYROXINE SODIUM
  14. MACRODANTIN [Concomitant]
     Active Substance: NITROFURANTOIN

REACTIONS (30)
  - Confusional state [None]
  - Hyperhidrosis [None]
  - Sleep terror [None]
  - Urine output decreased [None]
  - Generalised erythema [None]
  - Chest discomfort [None]
  - Restlessness [None]
  - Dysuria [None]
  - Pruritus generalised [None]
  - Chest pain [None]
  - Muscle spasms [None]
  - Drug withdrawal syndrome [None]
  - Dizziness [None]
  - Mood swings [None]
  - Irritability [None]
  - Insomnia [None]
  - Impulsive behaviour [None]
  - Dyskinesia [None]
  - Headache [None]
  - Chills [None]
  - Cold sweat [None]
  - Hyperreflexia [None]
  - Somnambulism [None]
  - Disorientation [None]
  - Heart rate increased [None]
  - Agitation [None]
  - Abnormal dreams [None]
  - Anxiety [None]
  - Hallucination [None]
  - Mania [None]

NARRATIVE: CASE EVENT DATE: 20161215
